FAERS Safety Report 5022274-9 (Version None)
Quarter: 2006Q2

REPORT INFORMATION
  Report Type: 
  Country: None (occurrence: None)
  Receive Date: 20060609
  Receipt Date: 20060607
  Transmission Date: 20061013
  Serious: Yes (Hospitalization)
  Sender: FDA-Public Use
  Company Number: US-GLAXOSMITHKLINE-A0608220A

PATIENT
  Age: 54 Year
  Sex: Female

DRUGS (12)
  1. LOTRONEX [Suspect]
     Indication: IRRITABLE BOWEL SYNDROME
     Dosage: .5MG PER DAY
     Route: 048
  2. LAMICTAL [Concomitant]
  3. CYMBALTA [Concomitant]
  4. ZYRTEC [Concomitant]
  5. PREVACID [Concomitant]
  6. STRATTERA [Concomitant]
  7. RELAFEN [Concomitant]
  8. MULTI-VITAMIN [Concomitant]
  9. LOVASTATIN [Concomitant]
  10. VITAMIN E [Concomitant]
  11. CALCIUM GLUCONATE [Concomitant]
  12. SYNTHROID [Concomitant]

REACTIONS (2)
  - CHEST PAIN [None]
  - HEPATIC ENZYME INCREASED [None]
